FAERS Safety Report 4519487-9 (Version None)
Quarter: 2004Q4

REPORT INFORMATION
  Report Type: 
  Country: None (occurrence: None)
  Receive Date: 20041101
  Receipt Date: 20040120
  Transmission Date: 20050328
  Serious: Yes (Other)
  Sender: FDA-Public Use
  Company Number: HQWYE522122JAN04

PATIENT
  Age: 76 Year
  Sex: Female
  Weight: 83.08 kg

DRUGS (4)
  1. PREMARIN [Suspect]
     Indication: OESTROGEN REPLACEMENT THERAPY
     Dosage: SEE IMAGE
     Route: 048
     Dates: start: 20031101, end: 20030112
  2. PREMARIN [Suspect]
     Indication: OESTROGEN REPLACEMENT THERAPY
     Dosage: SEE IMAGE
     Route: 048
     Dates: start: 19730101, end: 20031001
  3. PREMARIN [Suspect]
     Indication: OESTROGEN REPLACEMENT THERAPY
     Dosage: SEE IMAGE
     Route: 048
     Dates: start: 20031001, end: 20031101
  4. PREMARIN [Suspect]
     Indication: OESTROGEN REPLACEMENT THERAPY
     Dosage: SEE IMAGE
     Route: 048
     Dates: start: 20031101, end: 20031101

REACTIONS (1)
  - THERAPEUTIC RESPONSE DECREASED [None]
